FAERS Safety Report 5133093-7 (Version None)
Quarter: 2006Q4

REPORT INFORMATION
  Report Type: 
  Country: None (occurrence: None)
  Receive Date: 20061017
  Receipt Date: 20060929
  Transmission Date: 20070319
  Serious: Yes (Hospitalization)
  Sender: FDA-Public Use
  Company Number: 105633

PATIENT
  Sex: Male

DRUGS (1)
  1. DAIVONEX (CALCIPOTRIOL) [Suspect]
     Indication: PSORIASIS
     Dosage: TO
     Route: 061
     Dates: start: 20060901

REACTIONS (1)
  - EPILEPSY [None]
